FAERS Safety Report 12060585 (Version 1)
Quarter: 2016Q1

REPORT INFORMATION
  Report Type: Spontaneous
  Country: US (occurrence: US)
  Receive Date: 20160210
  Receipt Date: 20160210
  Transmission Date: 20160526
  Serious: Yes (Other)
  Sender: FDA-Public Use
  Company Number: US-MALLINCKRODT-201504000125

PATIENT
  Age: 67 Year
  Sex: Male
  Weight: 109 kg

DRUGS (3)
  1. INOMAX [Suspect]
     Active Substance: NITRIC OXIDE
     Indication: LUNG DISORDER
     Dosage: 40 PPM, CONTINUOUS
     Dates: start: 20150417, end: 20150418
  2. INOMAX [Suspect]
     Active Substance: NITRIC OXIDE
     Indication: VENTRICULAR ASSIST DEVICE INSERTION
     Dosage: 5 UNK, UNK
     Dates: start: 20150418, end: 20150423
  3. INOMAX [Suspect]
     Active Substance: NITRIC OXIDE
     Indication: GENERAL PHYSICAL HEALTH DETERIORATION

REACTIONS (2)
  - Methaemoglobinaemia [Recovering/Resolving]
  - Off label use [Unknown]

NARRATIVE: CASE EVENT DATE: 20150417
